FAERS Safety Report 16143420 (Version 23)
Quarter: 2025Q2

REPORT INFORMATION
  Report Type: Spontaneous
  Country: US (occurrence: US)
  Receive Date: 20190401
  Receipt Date: 20250610
  Transmission Date: 20250716
  Serious: Yes (Other)
  Sender: PFIZER
  Company Number: US-PFIZER INC-2019134014

PATIENT
  Age: 61 Year
  Sex: Female
  Weight: 63.5 kg

DRUGS (4)
  1. ESTRING [Suspect]
     Active Substance: ESTRADIOL
     Indication: Oestrogen deficiency
     Dates: end: 201903
  2. ESTRING [Suspect]
     Active Substance: ESTRADIOL
     Dosage: 2 MG, VAGINAL ROUND RING, CHANGE IT QUARTERLY
     Route: 067
     Dates: end: 2024
  3. CRESTOR [Concomitant]
     Active Substance: ROSUVASTATIN CALCIUM
     Indication: Blood cholesterol increased
     Dosage: 5 MG TABLET EVERY OTHER DAY
     Route: 048
  4. PROBIOTICS NOS [Concomitant]
     Active Substance: PROBIOTICS NOS
     Indication: Diverticulitis
     Dosage: 17000 MG CAPSULE, EVERYDAY
     Route: 048

REACTIONS (17)
  - Poor quality device used [Unknown]
  - Device defective [Unknown]
  - Mood swings [Unknown]
  - Malaise [Unknown]
  - Asthenia [Unknown]
  - Mood altered [Unknown]
  - Lethargy [Unknown]
  - Feeling abnormal [Not Recovered/Not Resolved]
  - Sluggishness [Not Recovered/Not Resolved]
  - Headache [Unknown]
  - Confusional state [Unknown]
  - Nervousness [Unknown]
  - Musculoskeletal discomfort [Unknown]
  - Poor quality product administered [Unknown]
  - Product complaint [Unknown]
  - Product prescribing issue [Unknown]
  - Contraindicated product administered [Unknown]

NARRATIVE: CASE EVENT DATE: 20240101
